FAERS Safety Report 8346065-6 (Version None)
Quarter: 2012Q2

REPORT INFORMATION
  Report Type: 
  Country: None (occurrence: None)
  Receive Date: 20120509
  Receipt Date: 20120503
  Transmission Date: 20120825
  Serious: No
  Sender: FDA-Public Use
  Company Number: US-PFIZER INC-2012099753

PATIENT
  Sex: Male
  Weight: 136 kg

DRUGS (9)
  1. SUTENT [Suspect]
     Indication: METASTATIC RENAL CELL CARCINOMA
     Dosage: 50 MG DAILY, (1 CAPSULE DAILY CYCLE 4 WEEKS ON AND 2 OFF)
     Dates: start: 20120402, end: 20120429
  2. ISOSORBIDE [Concomitant]
     Dosage: UNK
  3. POTASSIUM CHLORIDE [Concomitant]
     Dosage: UNK
  4. GABAPENTIN [Concomitant]
     Dosage: UNK
  5. ALLOPURINOL [Concomitant]
     Indication: GOUT
     Dosage: 100 MG, UNK
  6. FUROSEMIDE [Concomitant]
     Dosage: UNK
  7. OMEPRAZOLE [Concomitant]
     Dosage: UNK
  8. ALLOPURINOL [Concomitant]
     Dosage: 200 MG, UNK
  9. PRAVASTATIN [Concomitant]
     Dosage: UNK

REACTIONS (4)
  - FATIGUE [None]
  - GOUT [None]
  - RESPIRATORY DISORDER [None]
  - RASH ERYTHEMATOUS [None]
